FAERS Safety Report 22049376 (Version 1)
Quarter: 2023Q1

REPORT INFORMATION
  Report Type: Spontaneous
  Country: US (occurrence: US)
  Receive Date: 20230301
  Receipt Date: 20230301
  Transmission Date: 20230418
  Serious: Yes (Other)
  Sender: FDA-Public Use
  Company Number: US-TAKEDA-2023TUS018595

PATIENT
  Sex: Female

DRUGS (5)
  1. VYVANSE [Suspect]
     Active Substance: LISDEXAMFETAMINE DIMESYLATE
     Indication: Binge eating
     Dosage: 40 MILLIGRAM, QD
     Route: 065
     Dates: start: 202204
  2. VYVANSE [Suspect]
     Active Substance: LISDEXAMFETAMINE DIMESYLATE
     Indication: Attention deficit hyperactivity disorder
     Dosage: 50 MILLIGRAM, QD
     Route: 065
  3. VYVANSE [Suspect]
     Active Substance: LISDEXAMFETAMINE DIMESYLATE
     Dosage: 60 MILLIGRAM, QD
     Route: 065
  4. LORAZEPAM [Concomitant]
     Active Substance: LORAZEPAM
     Route: 065
  5. UNISOM SLEEPTABS [Concomitant]
     Active Substance: DOXYLAMINE SUCCINATE
     Route: 065

REACTIONS (11)
  - Central nervous system inflammation [Unknown]
  - Hunger [Unknown]
  - Emotional disorder [Unknown]
  - Weight increased [Unknown]
  - Stress [Unknown]
  - Drug ineffective [Unknown]
  - Mental disorder [Unknown]
  - Tremor [Unknown]
  - Blood pressure increased [Unknown]
  - Insomnia [Unknown]
  - Irritability [Unknown]
